FAERS Safety Report 10360469 (Version 2)
Quarter: 2014Q3

REPORT INFORMATION
  Report Type: Report from Study
  Country: GB (occurrence: GB)
  Receive Date: 20140804
  Receipt Date: 20140820
  Transmission Date: 20150326
  Serious: Yes (Hospitalization, Other)
  Sender: FDA-Public Use
  Company Number: PHHY2014GB093420

PATIENT
  Age: 7 Year
  Sex: Male

DRUGS (1)
  1. SOMATROPIN [Suspect]
     Active Substance: SOMATROPIN
     Indication: SMALL FOR DATES BABY
     Dosage: 0.6 MG, QD
     Route: 058
     Dates: start: 20140122

REACTIONS (7)
  - Urinary tract infection [Unknown]
  - Meningitis viral [Recovered/Resolved]
  - Photophobia [Unknown]
  - Fall [Unknown]
  - Inflammatory marker increased [Unknown]
  - Swelling [Unknown]
  - Headache [Unknown]

NARRATIVE: CASE EVENT DATE: 20140426
